FAERS Safety Report 9869662 (Version 2)
Quarter: 2014Q1

REPORT INFORMATION
  Report Type: Spontaneous
  Country: FR (occurrence: FR)
  Receive Date: 20140205
  Receipt Date: 20140305
  Transmission Date: 20141002
  Serious: Yes (Hospitalization)
  Sender: FDA-Public Use
  Company Number: FR-SA-2014SA011401

PATIENT
  Age: 63 Year
  Sex: Male
  Weight: 75 kg

DRUGS (24)
  1. JEVTANA [Suspect]
     Indication: PROSTATE CANCER
     Dosage: IV PERFUSION
     Dates: start: 20140106, end: 20140106
  2. JEVTANA [Suspect]
     Indication: PROSTATE CANCER
     Dosage: IV PERFUSION
     Dates: start: 20140127, end: 20140217
  3. JEVTANA [Suspect]
     Indication: PROSTATE CANCER
     Route: 042
     Dates: start: 20131212, end: 20131212
  4. DEXAMETHASONE [Concomitant]
     Indication: PREMEDICATION
     Dosage: ONGOING AT EACH COURSE
     Dates: start: 201312
  5. DEXAMETHASONE [Concomitant]
     Indication: PREMEDICATION
     Route: 042
     Dates: start: 20140106
  6. POLARAMINE [Concomitant]
     Indication: PREMEDICATION
     Dosage: ONGOING AT EACH COURSE
     Dates: start: 201312
  7. POLARAMINE [Concomitant]
     Indication: PREMEDICATION
     Dates: start: 20140106
  8. ONDANSETRON [Concomitant]
     Indication: PREMEDICATION
     Dosage: ONGOING AT EACH COURSE
     Dates: start: 201312
  9. ONDANSETRON [Concomitant]
     Indication: PREMEDICATION
     Dates: start: 20140106
  10. NEULASTA [Concomitant]
     Indication: PROPHYLAXIS
     Dosage: STOP DATE: DEC2013
     Dates: start: 20131212
  11. GRANOCYTE [Concomitant]
     Indication: PROPHYLAXIS
     Dates: start: 20140106
  12. INEXIUM [Concomitant]
     Route: 048
     Dates: start: 20131223
  13. DUPHALAC [Concomitant]
     Indication: CONSTIPATION
     Dosage: 2 DF DAILY IF NEEDED
     Route: 048
     Dates: start: 20131223
  14. IMODIUM [Concomitant]
     Indication: DIARRHOEA
     Dosage: 2 DF DAILY IF NEEDED
     Route: 048
     Dates: start: 20131223
  15. MOTILIUM [Concomitant]
     Route: 048
     Dates: start: 20131223
  16. LYRICA [Concomitant]
     Route: 048
     Dates: start: 20131223
  17. CORTANCYL [Concomitant]
     Route: 048
     Dates: start: 20131223
  18. DUROGESIC [Concomitant]
     Dosage: 50 MCG/H
     Route: 062
     Dates: start: 20131223
  19. DUROGESIC [Concomitant]
     Dosage: 12 MCG/H
     Route: 062
     Dates: start: 20131223
  20. ABSTRAL [Concomitant]
     Dosage: FIVE TIMES PER DAY
     Route: 060
     Dates: start: 20131223, end: 20140106
  21. CALSYN [Concomitant]
     Route: 058
     Dates: start: 20131223, end: 20140106
  22. TAMSULOSIN HYDROCHLORIDE [Concomitant]
     Dosage: FOR 2 WEEKS
     Route: 048
     Dates: start: 20131223
  23. CIFLOX [Concomitant]
     Dosage: FOR 2 WEEKS
     Route: 048
     Dates: start: 20131223
  24. RANITIDINE [Concomitant]

REACTIONS (6)
  - Malaise [Recovered/Resolved]
  - Hypotension [Recovered/Resolved]
  - Oxygen saturation decreased [Recovered/Resolved]
  - Erythema [Recovered/Resolved]
  - Feeling hot [Recovered/Resolved]
  - Haemoglobin decreased [Recovered/Resolved]
